FAERS Safety Report 4900345-2 (Version None)
Quarter: 2006Q1

REPORT INFORMATION
  Report Type: 
  Country: None (occurrence: None)
  Receive Date: 20060203
  Receipt Date: 20060130
  Transmission Date: 20060701
  Serious: Yes (Hospitalization, Other)
  Sender: FDA-Public Use
  Company Number: GB-GLAXOSMITHKLINE-B0408444A

PATIENT
  Age: 41 Year
  Sex: Female
  Weight: 1 kg

DRUGS (5)
  1. SALBUTAMOL [Suspect]
     Dosage: 5MG PER DAY
     Route: 055
     Dates: start: 20051030, end: 20051031
  2. AMINOPHYLLIN [Suspect]
     Route: 040
     Dates: start: 20051030, end: 20051030
  3. IPRATROPIUM BROMIDE [Suspect]
     Dosage: 500MCG PER DAY
     Route: 055
     Dates: start: 20051030, end: 20051031
  4. PIRITON [Concomitant]
     Dosage: 4MG PER DAY
     Route: 048
     Dates: start: 20051030, end: 20051030
  5. LORAZEPAM [Concomitant]
     Dosage: 2MG PER DAY
     Route: 048
     Dates: start: 20051030, end: 20051031

REACTIONS (2)
  - AMNESIA [None]
  - CONFUSIONAL STATE [None]
